FAERS Safety Report 9351720 (Version 1)
Quarter: 2013Q2

REPORT INFORMATION
  Report Type: Spontaneous
  Country: US (occurrence: US)
  Receive Date: 20130617
  Receipt Date: 20130617
  Transmission Date: 20140414
  Serious: No
  Sender: FDA-Public Use
  Company Number: US-UPSHER-SMITH LABORATORIES, INC.-12001969

PATIENT
  Age: 80 Year
  Sex: Female

DRUGS (9)
  1. PACERONE (USL) [Suspect]
     Indication: ATRIAL FIBRILLATION
     Dosage: 400 MG, QD
     Route: 048
     Dates: start: 20120604, end: 20120611
  2. PACERONE (USL) [Suspect]
     Dosage: 200 MG, QD
     Route: 048
     Dates: start: 20120612, end: 20120813
  3. WARFARIN [Concomitant]
     Dosage: 2.5 MG, QD
     Route: 048
  4. FUROSEMIDE [Concomitant]
     Dosage: 20 MG, QD
     Route: 048
  5. LOSARTAN [Concomitant]
     Dosage: 25 MG, QD
     Route: 048
  6. COREG [Concomitant]
     Dosage: 3.125 MG, UNK
  7. LEVOTHYROXINE [Concomitant]
     Dosage: 75 MCG, QD
     Route: 048
  8. COQ10 [Concomitant]
     Dosage: 200 MG, QD
     Route: 048
  9. VITAMINS NOS [Concomitant]
     Dosage: UNK

REACTIONS (23)
  - Vision blurred [Recovering/Resolving]
  - Eye pruritus [Not Recovered/Not Resolved]
  - Lacrimation increased [Not Recovered/Not Resolved]
  - Photophobia [Not Recovered/Not Resolved]
  - Ocular discomfort [Recovering/Resolving]
  - Dry eye [Not Recovered/Not Resolved]
  - Muscular weakness [Not Recovered/Not Resolved]
  - Fatigue [Not Recovered/Not Resolved]
  - Coordination abnormal [Not Recovered/Not Resolved]
  - Gait disturbance [Not Recovered/Not Resolved]
  - Balance disorder [Not Recovered/Not Resolved]
  - Neuropathy peripheral [Not Recovered/Not Resolved]
  - Middle insomnia [Not Recovered/Not Resolved]
  - Decreased appetite [Not Recovered/Not Resolved]
  - Rhinorrhoea [Not Recovered/Not Resolved]
  - Constipation [Not Recovered/Not Resolved]
  - Urinary incontinence [Not Recovered/Not Resolved]
  - Irritability [Not Recovered/Not Resolved]
  - Headache [Not Recovered/Not Resolved]
  - Alopecia [Not Recovered/Not Resolved]
  - Contusion [Not Recovered/Not Resolved]
  - International normalised ratio increased [Unknown]
  - Drug interaction [Not Recovered/Not Resolved]
